FAERS Safety Report 15297271 (Version 2)
Quarter: 2018Q3

REPORT INFORMATION
  Report Type: Spontaneous
  Country: FI (occurrence: FI)
  Receive Date: 20180820
  Receipt Date: 20180906
  Transmission Date: 20181010
  Serious: Yes (Other)
  Sender: FDA-Public Use
  Company Number: FI-BAYER-2018-153842

PATIENT
  Age: 26 Year
  Sex: Female

DRUGS (1)
  1. MIRENA [Suspect]
     Active Substance: LEVONORGESTREL
     Indication: MENORRHAGIA
     Dosage: 20 MCG/24HR, CONT
     Route: 015
     Dates: start: 201801, end: 201807

REACTIONS (8)
  - Hyperhidrosis [Recovered/Resolved]
  - Uterine cyst [Recovered/Resolved]
  - Haemorrhagic cyst [Recovered/Resolved]
  - Uterine spasm [Recovered/Resolved]
  - Procedural pain [Recovered/Resolved]
  - Muscle spasms [Recovered/Resolved]
  - Abdominal pain lower [Recovered/Resolved]
  - Migraine [Recovered/Resolved]

NARRATIVE: CASE EVENT DATE: 201801
